FAERS Safety Report 5422250-8 (Version None)
Quarter: 2007Q3

REPORT INFORMATION
  Report Type: 
  Country: None (occurrence: None)
  Receive Date: 20070822
  Receipt Date: 20070816
  Transmission Date: 20080115
  Serious: Yes (Life-Threatening, Other)
  Sender: FDA-Public Use
  Company Number: ZA-AVENTIS-200717551GDDC

PATIENT
  Age: 61 Year
  Sex: Male
  Weight: 115 kg

DRUGS (9)
  1. KETEK [Suspect]
     Dosage: DOSE: 2 TABS
     Route: 048
     Dates: start: 20070713
  2. KETEK [Suspect]
     Dosage: DOSE: 2 TABS
     Route: 048
     Dates: start: 20070713
  3. SYMBICORT [Concomitant]
     Indication: ASTHMA
     Dosage: DOSE QUANTITY: 2
     Route: 055
     Dates: start: 20070602
  4. SINGULAIR [Concomitant]
     Indication: PNEUMONIA
     Route: 048
     Dates: start: 20070602
  5. DUOVENT [Concomitant]
     Indication: ASTHMA
     Dosage: DOSE QUANTITY: 3
     Route: 055
     Dates: start: 20050601
  6. PREXUM [Concomitant]
     Indication: HYPERTENSION
     Dosage: DOSE: 1 TAB
     Route: 048
     Dates: start: 20050601
  7. ADCO-RETIC [Concomitant]
     Indication: HYPERTENSION
     Dosage: DOSE: 1 TAB
     Route: 048
     Dates: start: 20000201
  8. LORIEN [Concomitant]
     Indication: DEPRESSION
     Route: 048
     Dates: start: 19990101
  9. LORIEN [Concomitant]
     Indication: ANXIETY
     Route: 048
     Dates: start: 19990101

REACTIONS (4)
  - ANAPHYLACTOID REACTION [None]
  - BRONCHOSPASM [None]
  - OEDEMA [None]
  - URTICARIA [None]
